FAERS Safety Report 8834322 (Version 1)
Quarter: 2012Q4

REPORT INFORMATION
  Report Type: 
  Country: US (occurrence: US)
  Receive Date: 20121010
  Receipt Date: 20121010
  Transmission Date: 20130627
  Serious: Yes (Other)
  Sender: FDA-Public Use
  Company Number: US-PFIZER INC-2012250746

PATIENT
  Sex: Male

DRUGS (1)
  1. CHANTIX [Suspect]
     Indication: SMOKING CESSATION THERAPY
     Dosage: UNK
     Dates: start: 201209, end: 20121008

REACTIONS (4)
  - Dyspnoea [Unknown]
  - Joint dislocation [Unknown]
  - Pain in extremity [Unknown]
  - Back pain [Unknown]
